FAERS Safety Report 7027776-1 (Version None)
Quarter: 2010Q4

REPORT INFORMATION
  Report Type: 
  Country: None (occurrence: None)
  Receive Date: 20101001
  Receipt Date: 20101001
  Transmission Date: 20110411
  Serious: Yes (Life-Threatening, Hospitalization)
  Sender: FDA-Public Use
  Company Number: None

PATIENT
  Age: 64 Year
  Sex: Male

DRUGS (1)
  1. LISINOPRIL [Suspect]
     Indication: HYPERTENSION
     Dates: start: 20100901, end: 20100907

REACTIONS (3)
  - ANAPHYLACTIC REACTION [None]
  - ANGIOEDEMA [None]
  - DRUG HYPERSENSITIVITY [None]
